FAERS Safety Report 14879591 (Version 1)
Quarter: 2018Q2

REPORT INFORMATION
  Report Type: Spontaneous
  Country: US (occurrence: US)
  Receive Date: 20180511
  Receipt Date: 20180511
  Transmission Date: 20180711
  Serious: No
  Sender: FDA-Public Use
  Company Number: US-SHIRE-US201818295

PATIENT
  Age: 48 Year
  Sex: Female
  Weight: 53.97 kg

DRUGS (2)
  1. XIIDRA [Suspect]
     Active Substance: LIFITEGRAST
     Indication: DRY EYE
     Dosage: 1 GTT, 2X/DAY:BID
     Route: 047
     Dates: start: 201711, end: 201801
  2. XIIDRA [Suspect]
     Active Substance: LIFITEGRAST
     Dosage: 1 GTT, 2X/DAY:BID
     Route: 047
     Dates: start: 201805, end: 201805

REACTIONS (3)
  - Eye infection [Recovered/Resolved]
  - Instillation site pain [Recovered/Resolved]
  - Product contamination [Unknown]

NARRATIVE: CASE EVENT DATE: 201801
